FAERS Safety Report 24216644 (Version 1)
Quarter: 2024Q3

REPORT INFORMATION
  Report Type: Spontaneous
  Country: GR (occurrence: GR)
  Receive Date: 20240816
  Receipt Date: 20240816
  Transmission Date: 20241017
  Serious: Yes (Hospitalization)
  Sender: Steriscience PTE
  Company Number: GR-STERISCIENCE B.V.-2024-ST-001195

PATIENT
  Age: 67 Year
  Sex: Male

DRUGS (2)
  1. VANCOMYCIN [Suspect]
     Active Substance: VANCOMYCIN
     Indication: Oral infection
     Dosage: UNK
     Route: 065
  2. PIPERACILLIN AND TAZOBACTAM [Concomitant]
     Active Substance: PIPERACILLIN SODIUM\TAZOBACTAM SODIUM
     Indication: Oral infection
     Dosage: UNK
     Route: 065

REACTIONS (2)
  - Drug level below therapeutic [Unknown]
  - Drug ineffective [Unknown]
